FAERS Safety Report 9224220 (Version 1)
Quarter: 2013Q2

REPORT INFORMATION
  Report Type: Spontaneous
  Country: US (occurrence: None)
  Receive Date: 20130409
  Receipt Date: 20130409
  Transmission Date: 20140414
  Serious: Yes (Life-Threatening, Hospitalization)
  Sender: FDA-Public Use
  Company Number: None

PATIENT
  Age: 77 Year
  Sex: Male
  Weight: 75.9 kg

DRUGS (14)
  1. XARELTO [Suspect]
     Indication: ATRIAL FIBRILLATION
     Route: 048
     Dates: start: 20121201, end: 20130401
  2. MIDODRINE [Concomitant]
  3. LEXAPRO [Concomitant]
  4. FUROSEMIDE [Concomitant]
  5. ALDACTONE [Concomitant]
  6. MIRALAX [Concomitant]
  7. VITAMIN C [Concomitant]
  8. SENOKET [Concomitant]
  9. VITAMIN D [Concomitant]
  10. AMIODARONE [Concomitant]
  11. ATORVASTATIN [Concomitant]
  12. CARVEDILOL [Concomitant]
  13. COLACE [Concomitant]
  14. CLOPIDOGREL [Concomitant]

REACTIONS (3)
  - Dyspnoea [None]
  - Melaena [None]
  - Asthenia [None]
